FAERS Safety Report 5249115-9 (Version None)
Quarter: 2007Q1

REPORT INFORMATION
  Report Type: 
  Country: None (occurrence: None)
  Receive Date: 20070228
  Receipt Date: 20060815
  Transmission Date: 20070707
  Serious: No
  Sender: FDA-Public Use
  Company Number: US-GLAXOSMITHKLINE-A0616727A

PATIENT
  Age: 58 Year
  Sex: Female

DRUGS (5)
  1. VALTREX [Suspect]
     Dosage: 500MG PER DAY
     Route: 048
     Dates: start: 20060622
  2. SINGULAIR [Concomitant]
  3. NASONEX [Concomitant]
  4. HORMONE REPLACEMENT THERAPY [Concomitant]
  5. ASPIRIN [Concomitant]

REACTIONS (3)
  - MUSCLE SPASMS [None]
  - PHOTOSENSITIVITY REACTION [None]
  - RASH [None]
